FAERS Safety Report 8926162 (Version 3)
Quarter: 2013Q4

REPORT INFORMATION
  Report Type: Spontaneous
  Country: US (occurrence: US)
  Receive Date: 20121126
  Receipt Date: 20131223
  Transmission Date: 20140711
  Serious: Yes (Hospitalization)
  Sender: FDA-Public Use
  Company Number: US-BAYER-2012-121253

PATIENT
  Age: 31 Year
  Sex: Female
  Weight: 58.96 kg

DRUGS (14)
  1. YASMIN [Suspect]
     Indication: CONTRACEPTION
     Dosage: UNK
     Dates: start: 200508, end: 200610
  2. YASMIN [Suspect]
     Indication: PREMENSTRUAL DYSPHORIC DISORDER
  3. YAZ [Suspect]
     Indication: CONTRACEPTION
     Dosage: UNK
     Dates: start: 200612, end: 200701
  4. YAZ [Suspect]
     Indication: PREMENSTRUAL DYSPHORIC DISORDER
     Dosage: UNK
     Dates: start: 20070820, end: 200804
  5. CITALOPRAM [Concomitant]
     Dosage: 20 MG, 1.1/2 Q PM
     Route: 048
     Dates: start: 20100131, end: 20100304
  6. PROAIR HFA [Concomitant]
     Indication: WHEEZING
     Dosage: 90 MCG/INH (INTERPRETED AS INHALATION) 2 PUFFS BID (INTERPRETED AS TWICE DAILY) PRN
     Dates: start: 20100130, end: 20100304
  7. ALLEGRA [Concomitant]
     Indication: HYPERSENSITIVITY
     Dosage: 30 MG, Q DAY PRN
     Route: 048
     Dates: start: 20100130, end: 20100304
  8. AMBIEN [Concomitant]
     Dosage: UNK, Q HS
     Route: 048
     Dates: start: 20100304
  9. PYRIDIUM [Concomitant]
     Dosage: 100 MG, TID
     Route: 048
  10. ZOFRAN [Concomitant]
  11. MORPHINE [Concomitant]
  12. PHENERGAN [Concomitant]
     Route: 042
  13. IBUPROFEN [Concomitant]
  14. PRILOSEC [Concomitant]

REACTIONS (6)
  - Gallbladder disorder [None]
  - Injury [None]
  - Abdominal pain [None]
  - Pain [None]
  - Biliary dyskinesia [None]
  - Cholecystitis chronic [None]
